FAERS Safety Report 9846006 (Version 1)
Quarter: 2014Q1

REPORT INFORMATION
  Report Type: Spontaneous
  Country: US (occurrence: None)
  Receive Date: 20140122
  Receipt Date: 20140122
  Transmission Date: 20141002
  Serious: Yes (Other)
  Sender: FDA-Public Use
  Company Number: KAD201401-000022

PATIENT
  Age: 61 Year
  Sex: Male

DRUGS (10)
  1. RIBAVIRIN [Suspect]
     Indication: CHRONIC HEPATITIS C
     Route: 048
  2. LEDIPASVIR [Suspect]
     Indication: CHRONIC HEPATITIS C
  3. SOFOSBUVIR [Suspect]
     Indication: CHRONIC HEPATITIS C
  4. BENADRYL [Suspect]
     Dosage: AS REQUIRED
  5. ASPIRIN [Suspect]
     Route: 048
  6. ZYRTEC [Suspect]
     Dosage: AS REQUIRED
  7. BARACLUDE [Suspect]
     Route: 048
  8. ATARAX (HYDROXYZINE HYDROCHLORIDE) [Suspect]
     Dosage: AS REQURIED
  9. ZANTAC (RANITIDINE) [Suspect]
     Dosage: EVERY DAY
  10. PROGRAF [Suspect]
     Dosage: 0.5MG, EVERY AM AN PM

REACTIONS (10)
  - Chest pain [None]
  - Nausea [None]
  - Gastrooesophageal reflux disease [None]
  - Atelectasis [None]
  - Chest discomfort [None]
  - Electrocardiogram Q wave abnormal [None]
  - Haemoglobin decreased [None]
  - Haematocrit decreased [None]
  - Blood urea increased [None]
  - Myocardial infarction [None]
